FAERS Safety Report 16360546 (Version 1)
Quarter: 2019Q2

REPORT INFORMATION
  Report Type: Spontaneous
  Country: CN (occurrence: CN)
  Receive Date: 20190528
  Receipt Date: 20190528
  Transmission Date: 20190711
  Serious: Yes (Other)
  Sender: FDA-Public Use
  Company Number: CN-ASTELLAS-2019US022075

PATIENT
  Age: 48 Year
  Sex: Female

DRUGS (3)
  1. ERLOTINIB [Suspect]
     Active Substance: ERLOTINIB
     Indication: LUNG ADENOCARCINOMA
     Route: 048
     Dates: start: 201406, end: 201612
  2. CABOZANTINIB [Concomitant]
     Active Substance: CABOZANTINIB
     Indication: LUNG ADENOCARCINOMA
     Dosage: UNK UNK, UNKNOWN FREQ.
     Route: 048
  3. IBANDRONATE MONOSODIUM MONOHYDRATE [Concomitant]
     Indication: PRODUCT USED FOR UNKNOWN INDICATION
     Dosage: UNK, UNKNOWN FREQ. (EVERY MONTH)
     Route: 065
     Dates: start: 201501

REACTIONS (3)
  - Arthralgia [Unknown]
  - Pubic pain [Unknown]
  - Radiation pneumonitis [Unknown]
